FAERS Safety Report 25075278 (Version 2)
Quarter: 2025Q1

REPORT INFORMATION
  Report Type: Report from Study
  Country: FR (occurrence: FR)
  Receive Date: 20250313
  Receipt Date: 20250331
  Transmission Date: 20250409
  Serious: Yes (Other)
  Sender: BIOGEN
  Company Number: FR-BIOGEN-2025BI01302303

PATIENT
  Age: 16 Year
  Sex: Female
  Weight: 61 kg

DRUGS (3)
  1. OMAVELOXOLONE [Suspect]
     Active Substance: OMAVELOXOLONE
     Indication: Friedreich^s ataxia
     Dosage: 3 CAPSULES OF 50MG, PLANNED DURATION: 12 MONTHS
     Route: 050
     Dates: start: 20241121, end: 20250224
  2. FLUOXETINE [Concomitant]
     Active Substance: FLUOXETINE HYDROCHLORIDE
     Indication: Thymus disorder
     Route: 050
     Dates: start: 2023
  3. CHOLECALCIFEROL [Concomitant]
     Active Substance: CHOLECALCIFEROL
     Indication: Prophylaxis
     Route: 050
     Dates: start: 2023

REACTIONS (1)
  - Hepatic cytolysis [Not Recovered/Not Resolved]

NARRATIVE: CASE EVENT DATE: 20250224
